FAERS Safety Report 19655033 (Version 1)
Quarter: 2021Q3

REPORT INFORMATION
  Report Type: Spontaneous
  Country: US (occurrence: US)
  Receive Date: 20210802
  Receipt Date: 20210802
  Transmission Date: 20211014
  Serious: No
  Sender: FDA-Public Use
  Company Number: None

PATIENT

DRUGS (2)
  1. SULFASALAZINE. [Suspect]
     Active Substance: SULFASALAZINE
  2. SULFADIAZINE. [Suspect]
     Active Substance: SULFADIAZINE

REACTIONS (3)
  - Wrong product administered [None]
  - Nephrolithiasis [None]
  - Product dispensing error [None]
